FAERS Safety Report 5669179-8 (Version None)
Quarter: 2008Q1

REPORT INFORMATION
  Report Type: 
  Country: None (occurrence: None)
  Receive Date: 20080317
  Receipt Date: 20080317
  Transmission Date: 20080703
  Serious: Yes (Life-Threatening)
  Sender: FDA-Public Use
  Company Number: None

PATIENT
  Age: 65 Year
  Sex: Male
  Weight: 92.9874 kg

DRUGS (1)
  1. HEPARIN [Suspect]
     Indication: CARDIAC OPERATION
     Dates: start: 20071102, end: 20071102

REACTIONS (4)
  - DYSPNOEA [None]
  - FEELING HOT [None]
  - HYPERSENSITIVITY [None]
  - RENAL FAILURE [None]
